FAERS Safety Report 13786587 (Version 2)
Quarter: 2017Q4

REPORT INFORMATION
  Report Type: Spontaneous
  Country: US (occurrence: US)
  Receive Date: 20170725
  Receipt Date: 20171010
  Transmission Date: 20180320
  Serious: No
  Sender: FDA-Public Use
  Company Number: US-JNJFOC-20170606312

PATIENT
  Age: 37 Year
  Sex: Female
  Weight: 68.04 kg

DRUGS (2)
  1. TYLENOL EXTRA STRENGTH [Suspect]
     Active Substance: ACETAMINOPHEN
     Indication: HEADACHE
     Route: 048
     Dates: start: 20170506
  2. TYLENOL EXTRA STRENGTH [Suspect]
     Active Substance: ACETAMINOPHEN
     Indication: PAIN
     Route: 048
     Dates: start: 20170506

REACTIONS (3)
  - Laceration [Recovered/Resolved]
  - Product packaging issue [Unknown]
  - Medication error [Unknown]

NARRATIVE: CASE EVENT DATE: 20170615
